FAERS Safety Report 20514348 (Version 1)
Quarter: 2022Q1

REPORT INFORMATION
  Report Type: Spontaneous
  Country: US (occurrence: US)
  Receive Date: 20220224
  Receipt Date: 20220224
  Transmission Date: 20220423
  Serious: No
  Sender: FDA-Public Use
  Company Number: US-VYERA PHARMACEUTICALS, LLC-2022VYE00003

PATIENT
  Age: 50 Year
  Sex: Female
  Weight: 55.329 kg

DRUGS (3)
  1. DARAPRIM [Suspect]
     Active Substance: PYRIMETHAMINE
     Indication: Eye infection toxoplasmal
     Dosage: 25 MG, 1X/DAY
     Route: 048
     Dates: start: 20220104, end: 20220119
  2. SULFADIAZINE [Suspect]
     Active Substance: SULFADIAZINE
     Indication: Eye infection toxoplasmal
     Dosage: 1000 MG, 4X/DAY
     Route: 048
     Dates: start: 20220104, end: 20220119
  3. LEUCOVORIN [Concomitant]
     Active Substance: LEUCOVORIN

REACTIONS (1)
  - Heavy menstrual bleeding [Recovered/Resolved]

NARRATIVE: CASE EVENT DATE: 20220104
